FAERS Safety Report 24558247 (Version 2)
Quarter: 2024Q4

REPORT INFORMATION
  Report Type: Report from Study
  Country: NL (occurrence: NL)
  Receive Date: 20241028
  Receipt Date: 20241118
  Transmission Date: 20250115
  Serious: Yes (Hospitalization)
  Sender: ABBVIE
  Company Number: NL-ABBVIE-5968706

PATIENT
  Age: 62 Year
  Sex: Male

DRUGS (10)
  1. CARBIDOPA\LEVODOPA [Suspect]
     Active Substance: CARBIDOPA\LEVODOPA
     Indication: Parkinson^s disease
     Dosage: LD:2.40ML; BIR:0.98ML/H; HIR:0.98ML/H; LIR:0.54ML/H; ED:0.10ML; TLD:20.00ML; DURATION REMAINS AT ...
     Route: 058
     Dates: start: 20240715, end: 20240716
  2. CARBIDOPA\LEVODOPA [Suspect]
     Active Substance: CARBIDOPA\LEVODOPA
     Dosage: LD:2.40ML; BIR:1.00ML/H; HIR:1.00ML/H; LIR:0.59ML/H; ED:0.15ML; TLD:19.90ML; DURATION REMAINS AT ...
     Route: 058
     Dates: start: 20240717, end: 20240719
  3. CARBIDOPA\LEVODOPA [Suspect]
     Active Substance: CARBIDOPA\LEVODOPA
     Dosage: LD:2.40ML; BIR:0.99ML/H; HIR:0.99ML/H; LIR:0.57ML/H; ED:0.15ML, DURATION REMAINS AT 24 HOURS
     Route: 058
     Dates: start: 20240716, end: 20240717
  4. CARBIDOPA\LEVODOPA [Suspect]
     Active Substance: CARBIDOPA\LEVODOPA
     Dosage: LD:2.30ML; BIR:1.00ML/H; HIR:1.00ML/H; LIR:0.67ML/H; ED:0.15ML; TLD:21.03ML; DURATION REMAINS AT ...
     Route: 058
     Dates: start: 20240722, end: 20240902
  5. CARBIDOPA\LEVODOPA [Suspect]
     Active Substance: CARBIDOPA\LEVODOPA
     Dosage: LD:2.30ML; BIR:0.96ML/H; HIR:0.96ML/H; LIR:0.69ML/H; ED:0.15ML; DURATION REMAINS AT 24 HOURS
     Route: 058
     Dates: start: 20240902, end: 20241009
  6. CARBIDOPA\LEVODOPA [Suspect]
     Active Substance: CARBIDOPA\LEVODOPA
     Dosage: LD:2.30ML; BIR:0.86ML/H; HIR:0.86ML/H; LIR:0.59ML/H; ED:0.15ML, DURATION REMAINS AT 24 HOURS
     Route: 058
     Dates: start: 20241112
  7. CARBIDOPA\LEVODOPA [Suspect]
     Active Substance: CARBIDOPA\LEVODOPA
     Dosage: LD:2.30ML; BIR:0.92ML/H; HIR:0.92ML/H; LIR:0.57ML/H; ED:0.15ML, DURATION REMAINS AT 24 HOURS
     Route: 058
     Dates: start: 20241009, end: 20241112
  8. CARBIDOPA\LEVODOPA [Suspect]
     Active Substance: CARBIDOPA\LEVODOPA
     Dosage: LD:2.30ML; BIR:0.99ML/H; HIR:0.99ML/H; LIR:0.62ML/H; ED:0.15ML; DURATION REMAINS AT 24 HOURS
     Route: 058
     Dates: start: 20240719, end: 20240722
  9. CLOZAPINE [Concomitant]
     Active Substance: CLOZAPINE
     Indication: Parkinson^s disease
     Dosage: INCREASED DOSE
     Route: 048
     Dates: start: 202410
  10. CLOZAPINE [Concomitant]
     Active Substance: CLOZAPINE
     Indication: Parkinson^s disease
     Dosage: LAST DOSE ADMINISTERED: OCT 2024
     Route: 048
     Dates: start: 20240911

REACTIONS (5)
  - Anxiety [Not Recovered/Not Resolved]
  - Hallucination [Not Recovered/Not Resolved]
  - Psychiatric care [Not Recovered/Not Resolved]
  - Feeling of despair [Unknown]
  - Apathy [Unknown]

NARRATIVE: CASE EVENT DATE: 20240101
